FAERS Safety Report 11649642 (Version 1)
Quarter: 2015Q4

REPORT INFORMATION
  Report Type: Spontaneous
  Country: CN (occurrence: CN)
  Receive Date: 20151021
  Receipt Date: 20151021
  Transmission Date: 20160304
  Serious: Yes (Other)
  Sender: FDA-Public Use
  Company Number: CN-BAYER-2015-441485

PATIENT
  Sex: Male

DRUGS (2)
  1. BAYASPIRIN [Suspect]
     Active Substance: ASPIRIN
     Dosage: UNK
  2. GEFARNATE [Suspect]
     Active Substance: GEFARNATE
     Indication: PROPHYLAXIS

REACTIONS (4)
  - Chronic gastritis [None]
  - Vomiting [None]
  - Gastrointestinal haemorrhage [None]
  - Gastrointestinal mucosal disorder [None]
